FAERS Safety Report 24704252 (Version 4)
Quarter: 2025Q1

REPORT INFORMATION
  Report Type: Spontaneous
  Country: US (occurrence: US)
  Receive Date: 20241206
  Receipt Date: 20250319
  Transmission Date: 20250409
  Serious: Yes (Other)
  Sender: ALEXION PHARMACEUTICALS
  Company Number: US-ASTRAZENECA-202411GLO027398US

PATIENT
  Age: 20 Year

DRUGS (19)
  1. QUETIAPINE FUMARATE [Suspect]
     Active Substance: QUETIAPINE FUMARATE
     Indication: Narcolepsy
     Route: 065
  2. QUETIAPINE FUMARATE [Suspect]
     Active Substance: QUETIAPINE FUMARATE
     Route: 065
  3. QUETIAPINE FUMARATE [Suspect]
     Active Substance: QUETIAPINE FUMARATE
     Route: 065
  4. LUMRYZ [Suspect]
     Active Substance: SODIUM OXYBATE
     Indication: Cataplexy
  5. LUMRYZ [Suspect]
     Active Substance: SODIUM OXYBATE
     Dosage: 6 GRAM, QD
  6. LUMRYZ [Suspect]
     Active Substance: SODIUM OXYBATE
     Dosage: 7.5 GRAM, QD
  7. LUMRYZ [Suspect]
     Active Substance: SODIUM OXYBATE
  8. WEGOVY [Suspect]
     Active Substance: SEMAGLUTIDE
     Route: 065
  9. WEGOVY [Suspect]
     Active Substance: SEMAGLUTIDE
     Route: 065
  10. LITHIUM [Concomitant]
     Active Substance: LITHIUM
  11. KLONOPIN [Concomitant]
     Active Substance: CLONAZEPAM
  12. SEROQUEL [Concomitant]
     Active Substance: QUETIAPINE FUMARATE
  13. ZOFRAN [Concomitant]
     Active Substance: ONDANSETRON HYDROCHLORIDE
  14. PROPRANOLOL [Concomitant]
     Active Substance: PROPRANOLOL HYDROCHLORIDE
  15. PROMETHAZINE [Concomitant]
     Active Substance: PROMETHAZINE HYDROCHLORIDE
  16. LITHIUM CARBONATE [Concomitant]
     Active Substance: LITHIUM CARBONATE
  17. VALTREX [Concomitant]
     Active Substance: VALACYCLOVIR HYDROCHLORIDE
  18. HYOSCYAMINE [Concomitant]
     Active Substance: HYOSCYAMINE
  19. LILETTA [Concomitant]
     Active Substance: LEVONORGESTREL

REACTIONS (21)
  - Loss of consciousness [Unknown]
  - Initial insomnia [Not Recovered/Not Resolved]
  - Middle insomnia [Unknown]
  - Vertigo [Unknown]
  - Drug interaction [Unknown]
  - Feeling abnormal [Unknown]
  - Somnolence [Unknown]
  - Dizziness [Unknown]
  - Vomiting [Unknown]
  - Nausea [Unknown]
  - Insomnia [Unknown]
  - Hypophagia [Unknown]
  - Sleep deficit [Unknown]
  - Restlessness [Unknown]
  - Weight decreased [Unknown]
  - Muscle spasms [Unknown]
  - Drug ineffective [Unknown]
  - Product dose omission issue [Unknown]
  - Wrong technique in product usage process [Unknown]
  - Blood potassium decreased [Unknown]
  - Blood calcium increased [Unknown]
